FAERS Safety Report 12883527 (Version 1)
Quarter: 2016Q4

REPORT INFORMATION
  Report Type: Spontaneous
  Country: US (occurrence: US)
  Receive Date: 20161025
  Receipt Date: 20161025
  Transmission Date: 20170207
  Serious: Yes (Other)
  Sender: FDA-Public Use
  Company Number: PHHY2016US146723

PATIENT
  Age: 51 Year
  Sex: Female

DRUGS (1)
  1. CAMBIA [Suspect]
     Active Substance: DICLOFENAC POTASSIUM
     Indication: MIGRAINE WITHOUT AURA
     Dosage: 50 MG, 1 PACKET WITH 1-2 OUNCES OF WATER
     Route: 048
     Dates: start: 20160926

REACTIONS (1)
  - Renal impairment [Recovered/Resolved]
